FAERS Safety Report 25726744 (Version 1)
Quarter: 2025Q3

REPORT INFORMATION
  Report Type: Spontaneous
  Country: US (occurrence: None)
  Receive Date: 20250825
  Receipt Date: 20250825
  Transmission Date: 20251021
  Serious: Yes (Life-Threatening, Other)
  Sender: FDA-CTU
  Company Number: None

PATIENT
  Age: 68 Year
  Sex: Male
  Weight: 85.5 kg

DRUGS (1)
  1. DAPSONE [Suspect]
     Active Substance: DAPSONE
     Dosage: FREQUENCY : DAILY;?
     Route: 048
     Dates: start: 20250421, end: 20250821

REACTIONS (3)
  - Methaemoglobinaemia [None]
  - Therapy interrupted [None]
  - Drug hypersensitivity [None]

NARRATIVE: CASE EVENT DATE: 20250821
